FAERS Safety Report 10382403 (Version 1)
Quarter: 2014Q3

REPORT INFORMATION
  Report Type: Report from Study
  Country: JP (occurrence: JP)
  Receive Date: 20140813
  Receipt Date: 20140813
  Transmission Date: 20150326
  Serious: Yes (Death)
  Sender: FDA-Public Use
  Company Number: JP-PFIZER INC-2014221956

PATIENT
  Age: 72 Year
  Sex: Male

DRUGS (2)
  1. IRINOTECAN HCL [Suspect]
     Active Substance: IRINOTECAN HYDROCHLORIDE
     Indication: ADENOCARCINOMA
     Dosage: 50 MG/M^2, CYCLIC (ON DAYS 1 AND 8, EVERY 4 WEEKS)
  2. NEDAPLATIN [Suspect]
     Active Substance: NEDAPLATIN
     Indication: ADENOCARCINOMA
     Dosage: 50 MG/M^2, CYCLIC (ON DAYS 1 AND 8, EVERY 4 WEEKS)

REACTIONS (2)
  - Febrile neutropenia [Fatal]
  - Diarrhoea [Fatal]
